FAERS Safety Report 9154701 (Version 4)
Quarter: 2013Q2

REPORT INFORMATION
  Report Type: Spontaneous
  Country: US (occurrence: None)
  Receive Date: 20130212
  Receipt Date: 20130516
  Transmission Date: 20140414
  Serious: Yes (Other)
  Sender: FDA-Public Use
  Company Number: ACO_34106_2013

PATIENT
  Age: 65 Year
  Sex: Female
  Weight: 52.2 kg

DRUGS (8)
  1. AMPYRA [Suspect]
     Indication: GAIT DISTURBANCE
     Dosage: 10 MG, BID
     Route: 048
     Dates: start: 20110627
  2. AMLODIPINE [Suspect]
     Indication: RAYNAUD^S PHENOMENON
  3. METOPROLOL (METOPROLOL TARTRATE) [Concomitant]
  4. CYMBALTA (DULOXETINE HYDROCHLORIDE) [Concomitant]
  5. CYCLOBENZAPRINE (CYCLOBENZAPRINE HYDROCHLORIDE) [Concomitant]
  6. FOLTX (CYANOCOBALAMIN, FOLIC ACID, PYRIDOXINE HYDROCHLORIDE) [Concomitant]
  7. ESTRADIOL (ESTRADIOL) [Concomitant]
  8. OTHER THERAPEUTIC PRODUCTS [Concomitant]

REACTIONS (5)
  - Hallucination [None]
  - Local swelling [None]
  - Influenza [None]
  - Pneumonia [None]
  - Local swelling [None]
